FAERS Safety Report 8429845-8 (Version None)
Quarter: 2012Q2

REPORT INFORMATION
  Report Type: 
  Country: None (occurrence: None)
  Receive Date: 20120612
  Receipt Date: 20120606
  Transmission Date: 20120825
  Serious: Yes (Hospitalization, Other)
  Sender: FDA-Public Use
  Company Number: IE-ABBOTT-12P-229-0906552-00

PATIENT
  Sex: Female
  Weight: 55.5 kg

DRUGS (7)
  1. HUMIRA [Suspect]
     Indication: COLITIS ULCERATIVE
     Dosage: 1 IN 2 WEEKS,160/80/40
     Route: 058
     Dates: start: 20120101, end: 20120401
  2. MESALAMINE [Concomitant]
     Indication: COLITIS ULCERATIVE
     Route: 048
     Dates: start: 20101001, end: 20120401
  3. CALCICHEW D3 [Concomitant]
     Indication: COLITIS ULCERATIVE
     Route: 048
     Dates: start: 20100929
  4. COLIFOAM [Concomitant]
     Indication: COLITIS ULCERATIVE
     Dosage: NUMEROUS COURSES FROM JAN 2010-APR 2012
     Route: 054
     Dates: start: 20100101, end: 20120401
  5. STEROID THERAPY (UNSPECIFIED) [Concomitant]
     Indication: PRODUCT USED FOR UNKNOWN INDICATION
  6. PREDNISOLONE [Concomitant]
     Indication: COLITIS ULCERATIVE
     Dosage: 40MG TAPERING DOSE
     Route: 048
  7. MESALAMINE [Concomitant]
     Indication: COLITIS ULCERATIVE
     Dosage: NUMEROUS COURSES FROM JAN 2010 TO APR 2012
     Route: 054
     Dates: start: 20100101, end: 20120401

REACTIONS (7)
  - MYALGIA [None]
  - CONDITION AGGRAVATED [None]
  - COLECTOMY TOTAL [None]
  - ILEOSTOMY [None]
  - PYREXIA [None]
  - DRUG INEFFECTIVE [None]
  - INFLUENZA LIKE ILLNESS [None]
